FAERS Safety Report 16321070 (Version 10)
Quarter: 2021Q3

REPORT INFORMATION
  Report Type: Spontaneous
  Country: US (occurrence: US)
  Receive Date: 20190516
  Receipt Date: 20210713
  Transmission Date: 20211014
  Serious: Yes (Hospitalization, Other)
  Sender: FDA-Public Use
  Company Number: US-PFIZER INC-2019208177

PATIENT
  Age: 72 Year
  Sex: Female

DRUGS (5)
  1. LORBRENA [Suspect]
     Active Substance: LORLATINIB
     Dosage: 100 MG
  2. LORBRENA [Suspect]
     Active Substance: LORLATINIB
     Dosage: 100 MG, UNK
     Route: 048
  3. LORBRENA [Suspect]
     Active Substance: LORLATINIB
     Dosage: 250 MG
  4. LORBRENA [Suspect]
     Active Substance: LORLATINIB
     Indication: LUNG NEOPLASM MALIGNANT
     Dosage: 25 MG, FOUR TIMES A DAY
     Route: 048
  5. LORBRENA [Suspect]
     Active Substance: LORLATINIB
     Dosage: 400 MG, DAILY
     Route: 048

REACTIONS (9)
  - Pneumonia [Unknown]
  - Diabetes mellitus [Unknown]
  - Depressed mood [Unknown]
  - Osteoporosis [Unknown]
  - Feeling abnormal [Unknown]
  - Fall [Unknown]
  - Off label use [Unknown]
  - Back injury [Unknown]
  - Asthenia [Unknown]
